FAERS Safety Report 8303275 (Version 2)
Quarter: 2012Q4

REPORT INFORMATION
  Report Type: Report from Study
  Country: US (occurrence: US)
  Receive Date: 20111220
  Receipt Date: 20121119
  Transmission Date: 20130627
  Serious: Yes (Other)
  Sender: FDA-Public Use
  Company Number: US-UCBSA-8052950

PATIENT
  Age: 28 Year
  Sex: Female

DRUGS (4)
  1. KEPPRA [Suspect]
     Indication: EPILEPSY
     Dosage: Dose Freq.: DAILY
     Route: 048
     Dates: start: 200710
  2. ZERVALX [Concomitant]
     Indication: PREGNANCY
     Dosage: Dose Freq.: DAILY
     Route: 048
  3. PRENATAL VITAMINS [Concomitant]
     Indication: PREGNANCY
     Dosage: 1 TABLET QD
     Route: 048
     Dates: start: 20081229
  4. CALCIUM SUPPLEMENT [Concomitant]
     Indication: MINERAL SUPPLEMENTATION
     Route: 048

REACTIONS (3)
  - Caesarean section [Recovered/Resolved]
  - Pregnancy [Recovered/Resolved]
  - Exposure during pregnancy [None]
